FAERS Safety Report 13462072 (Version 1)
Quarter: 2017Q2

REPORT INFORMATION
  Report Type: Spontaneous
  Country: US (occurrence: US)
  Receive Date: 20170420
  Receipt Date: 20170420
  Transmission Date: 20170830
  Serious: No
  Sender: FDA-Public Use
  Company Number: None

PATIENT
  Age: 41 Year
  Sex: Male
  Weight: 72 kg

DRUGS (3)
  1. FISH TABLETS [Concomitant]
  2. MULTIVITAMINS [Concomitant]
     Active Substance: VITAMINS
  3. DOXYCYCLINE HYCLATE 100MG TBEC [Suspect]
     Active Substance: DOXYCYCLINE HYCLATE
     Indication: HORDEOLUM
     Dosage: ?          QUANTITY:20 TABLET(S);?
     Route: 048
     Dates: start: 20170412, end: 20170418

REACTIONS (4)
  - Fatigue [None]
  - Pyrexia [None]
  - Chills [None]
  - Pain [None]

NARRATIVE: CASE EVENT DATE: 20170417
